FAERS Safety Report 6604293-1 (Version None)
Quarter: 2010Q1

REPORT INFORMATION
  Report Type: 
  Country: None (occurrence: None)
  Receive Date: 20100226
  Receipt Date: 20090810
  Transmission Date: 20100710
  Serious: No
  Sender: FDA-Public Use
  Company Number: A0801357A

PATIENT
  Age: 62 Year
  Sex: Female

DRUGS (14)
  1. LAMICTAL CD [Suspect]
     Indication: NEUROPATHY PERIPHERAL
     Dosage: 50MG PER DAY
     Route: 048
     Dates: start: 20090601
  2. PERCOCET [Suspect]
     Indication: PAIN
     Route: 048
     Dates: start: 20090601
  3. PREMARIN [Suspect]
     Indication: HORMONE REPLACEMENT THERAPY
     Dosage: 1.25MG PER DAY
     Route: 048
     Dates: start: 19790101
  4. ASPIRIN [Concomitant]
  5. GAMMAGARD [Concomitant]
     Route: 042
  6. LISINOPRIL [Concomitant]
  7. SYNTHROID [Concomitant]
  8. NEXIUM [Concomitant]
  9. FORTEO [Concomitant]
  10. ATROVENT [Concomitant]
  11. QVAR 40 [Concomitant]
  12. VITAMIN B-12 [Concomitant]
  13. ALLERGY INJECTIONS [Concomitant]
  14. NASAREL [Concomitant]

REACTIONS (2)
  - HEADACHE [None]
  - HOT FLUSH [None]
